FAERS Safety Report 16607857 (Version 1)
Quarter: 2019Q3

REPORT INFORMATION
  Report Type: Spontaneous
  Country: DE (occurrence: DE)
  Receive Date: 20190722
  Receipt Date: 20190722
  Transmission Date: 20191004
  Serious: Yes (Other)
  Sender: FDA-Public Use
  Company Number: DE-ACTELION-A-CH2019-193185

PATIENT
  Age: 47 Year
  Sex: Female
  Weight: 88 kg

DRUGS (1)
  1. TRACLEER [Suspect]
     Active Substance: BOSENTAN
     Indication: PULMONARY ARTERIAL HYPERTENSION
     Dosage: UNK
     Route: 048
     Dates: start: 20170312

REACTIONS (4)
  - Staphylococcal infection [Unknown]
  - Systemic inflammatory response syndrome [Unknown]
  - Catheter removal [Unknown]
  - Device related sepsis [Unknown]

NARRATIVE: CASE EVENT DATE: 201708
